FAERS Safety Report 21551513 (Version 1)
Quarter: 2022Q4

REPORT INFORMATION
  Report Type: Spontaneous
  Country: US (occurrence: US)
  Receive Date: 20221103
  Receipt Date: 20221103
  Transmission Date: 20230112
  Serious: Yes (Hospitalization)
  Sender: FDA-Public Use
  Company Number: US-INCYTE CORPORATION-2022IN010533

PATIENT

DRUGS (1)
  1. JAKAFI [Suspect]
     Active Substance: RUXOLITINIB
     Indication: Myelofibrosis
     Dosage: 10 MILLIGRAM, BID
     Route: 048
     Dates: start: 20220413

REACTIONS (8)
  - Cardiac disorder [Unknown]
  - Fall [Unknown]
  - Asthenia [Unknown]
  - Anxiety [Unknown]
  - Product dose omission issue [Unknown]
  - Product distribution issue [Unknown]
  - Haemoglobin decreased [Unknown]
  - Dizziness [Unknown]
